FAERS Safety Report 8921756 (Version 3)
Quarter: 2013Q2

REPORT INFORMATION
  Report Type: Report from Study
  Country: US (occurrence: US)
  Receive Date: 20121121
  Receipt Date: 20130627
  Transmission Date: 20140414
  Serious: Yes (Hospitalization, Other)
  Sender: FDA-Public Use
  Company Number: US-ABBOTT-12P-163-1007976-00

PATIENT
  Age: 30 Year
  Sex: Female

DRUGS (16)
  1. HUMIRA [Suspect]
     Indication: CROHN^S DISEASE
     Dates: start: 200903, end: 201207
  2. HUMIRA [Suspect]
     Route: 058
     Dates: start: 20130509, end: 20130509
  3. HUMIRA [Suspect]
     Route: 058
     Dates: start: 20130523, end: 20130523
  4. HUMIRA [Suspect]
     Route: 058
  5. PEPSID [Concomitant]
     Indication: GASTROOESOPHAGEAL REFLUX DISEASE
     Route: 048
  6. PROTONIX [Concomitant]
     Indication: GASTROOESOPHAGEAL REFLUX DISEASE
     Route: 048
  7. TOPAMAX [Concomitant]
     Indication: MIGRAINE PROPHYLAXIS
     Route: 048
  8. PROPRANOLOL [Concomitant]
     Indication: MIGRAINE PROPHYLAXIS
     Route: 048
  9. VITAMINS [Concomitant]
     Indication: VITAMIN SUPPLEMENTATION
     Route: 048
  10. IRON [Concomitant]
     Indication: ANAEMIA
     Route: 048
  11. CALCIUM [Concomitant]
     Indication: MINERAL SUPPLEMENTATION
     Route: 048
  12. OMEGA 3 [Concomitant]
     Indication: SUPPLEMENTATION THERAPY
     Route: 048
  13. LAMICTAL [Concomitant]
     Indication: BIPOLAR DISORDER
     Route: 048
  14. LIALDA [Concomitant]
     Indication: CROHN^S DISEASE
     Route: 048
  15. ZYRTEC [Concomitant]
     Indication: HYPERSENSITIVITY
     Route: 048
  16. VYVANSE [Concomitant]
     Indication: ATTENTION DEFICIT/HYPERACTIVITY DISORDER
     Route: 048

REACTIONS (7)
  - Abdominal hernia [Recovered/Resolved]
  - Injection site pain [Not Recovered/Not Resolved]
  - Depression [Unknown]
  - Device malfunction [Unknown]
  - Device difficult to use [Unknown]
  - Drug dose omission [Unknown]
  - Injection site pain [Unknown]
